FAERS Safety Report 4990350-2 (Version None)
Quarter: 2006Q2

REPORT INFORMATION
  Report Type: 
  Country: None (occurrence: None)
  Receive Date: 20060502
  Receipt Date: 20060502
  Transmission Date: 20061013
  Serious: Yes (Other)
  Sender: FDA-Public Use
  Company Number: None

PATIENT
  Age: 48 Year
  Sex: Female
  Weight: 78 kg

DRUGS (2)
  1. TIGECYCLINE 50 MG/5ML LEDERLE [Suspect]
     Indication: CELLULITIS
     Dosage: 100 MG ONCE IV BOLUS [ONE DOSE]
     Route: 040
     Dates: start: 20060404, end: 20060404
  2. TIGECYCLINE 50 MG/5 ML LEDERLE [Suspect]
     Indication: CELLULITIS
     Dosage: 50 MG Q 12 H IV BOLUS
     Route: 042
     Dates: start: 20060405, end: 20060406

REACTIONS (2)
  - NAUSEA [None]
  - VOMITING [None]
